FAERS Safety Report 25123833 (Version 1)
Quarter: 2025Q1

REPORT INFORMATION
  Report Type: Spontaneous
  Country: IN (occurrence: IN)
  Receive Date: 20250326
  Receipt Date: 20250326
  Transmission Date: 20250408
  Serious: Yes (Other)
  Sender: RANBAXY
  Company Number: IN-SUN PHARMACEUTICAL INDUSTRIES LTD.-2025R1-500301

PATIENT
  Age: 45 Year
  Sex: Female

DRUGS (1)
  1. VALPROATE [Suspect]
     Active Substance: VALPROIC ACID
     Indication: Seizure
     Route: 065

REACTIONS (1)
  - Oromandibular dystonia [Recovering/Resolving]
